FAERS Safety Report 21519402 (Version 4)
Quarter: 2022Q4

REPORT INFORMATION
  Report Type: Spontaneous
  Country: JP (occurrence: None)
  Receive Date: 20221028
  Receipt Date: 20221128
  Transmission Date: 20230113
  Serious: Yes (Death, Other)
  Sender: FDA-Public Use
  Company Number: 2022A282739

PATIENT
  Age: 23465 Day
  Sex: Female
  Weight: 58 kg

DRUGS (7)
  1. LYNPARZA [Suspect]
     Active Substance: OLAPARIB
     Indication: Ovarian cancer recurrent
     Route: 048
     Dates: start: 20190911
  2. LYNPARZA [Suspect]
     Active Substance: OLAPARIB
     Indication: Ovarian cancer recurrent
     Route: 048
     Dates: start: 20200415, end: 20211013
  3. HERBALS [Concomitant]
     Active Substance: HERBALS
     Indication: Constipation
     Route: 048
     Dates: start: 20160708
  4. ACETAMINOPHEN [Concomitant]
     Active Substance: ACETAMINOPHEN
     Indication: Ovarian cancer
     Route: 048
     Dates: start: 20160629
  5. HERBALS [Concomitant]
     Active Substance: HERBALS
     Indication: Hypoaesthesia
     Route: 048
     Dates: start: 20161012
  6. REBAMIPIDE [Concomitant]
     Active Substance: REBAMIPIDE
     Indication: Gastritis prophylaxis
     Route: 048
     Dates: start: 20160629
  7. MAGNESIUM OXIDE [Concomitant]
     Active Substance: MAGNESIUM OXIDE
     Indication: Constipation
     Route: 048
     Dates: start: 20160708

REACTIONS (3)
  - Myelodysplastic syndrome [Fatal]
  - Cerebral haemorrhage [Fatal]
  - Interstitial lung disease [Recovered/Resolved]

NARRATIVE: CASE EVENT DATE: 20200318
